FAERS Safety Report 19452920 (Version 2)
Quarter: 2021Q4

REPORT INFORMATION
  Report Type: Spontaneous
  Country: NL (occurrence: NL)
  Receive Date: 20210623
  Receipt Date: 20211014
  Transmission Date: 20220303
  Serious: Yes (Life-Threatening, Other)
  Sender: FDA-Public Use
  Company Number: None

PATIENT
  Age: 78 Year
  Sex: Female
  Weight: 63 kg

DRUGS (14)
  1. CLOPIDOGREL [Suspect]
     Active Substance: CLOPIDOGREL BISULFATE
     Indication: Anticoagulant therapy
     Dosage: 75 MG, 1 PER DAY 1 PIECE
     Route: 065
     Dates: start: 20210331
  2. NADROPARIN CALCIUM [Suspect]
     Active Substance: NADROPARIN CALCIUM
     Indication: Hip surgery
     Dosage: 1 DOSAGE FORM, QD
     Route: 065
     Dates: start: 20210331
  3. NADROPARIN [Suspect]
     Active Substance: NADROPARIN
     Indication: Hip surgery
     Dosage: 1X PER DAG 1SPUIT
     Dates: start: 20210331
  4. COVID-19 VACCINE NOS [Suspect]
     Active Substance: COVID-19 VACCINE NOS
     Indication: COVID-19 immunisation
     Dates: start: 20210411
  5. LITHIUM CARBONATE [Concomitant]
     Active Substance: LITHIUM CARBONATE
     Dosage: 300MG P.DAG
  6. OMEGA-3 FATTY ACIDS [Concomitant]
     Active Substance: OMEGA-3 FATTY ACIDS
     Dosage: 2 CAPS PER DAG
  7. METOPROLOL [Concomitant]
     Active Substance: METOPROLOL
     Dosage: 1/2 X 25
  8. SIMVASTATIN [Concomitant]
     Active Substance: SIMVASTATIN
     Dosage: FILMOMHULDE TABLET, 20 MG (MILLIGRAM)
  9. MINERALS\VITAMINS [Concomitant]
     Active Substance: MINERALS\VITAMINS
     Dosage: 1 TO 3 DRAGEES P.DAY
  10. HYDROCHLOORTHIAZIDE A [Concomitant]
     Dosage: 1X PER DAG  22, 5 MG
  11. CHOLECALCIFEROL [Concomitant]
     Active Substance: CHOLECALCIFEROL
     Dosage: 1 X P DAG 50 MG
  12. GLUCOSAMINE [Concomitant]
     Active Substance: GLUCOSAMINE
     Dosage: 1500 MG PER DAG
  13. Davitamon 10 [Concomitant]
     Indication: Product used for unknown indication
     Dosage: 1 TO 3 DRAGEES PER DAY
     Route: 065
  14. PYRIDOSTIGMINE [Concomitant]
     Active Substance: PYRIDOSTIGMINE
     Indication: Myasthenia gravis
     Dosage: 30 MG, 1 DOSE 8 HOURS
     Route: 065
     Dates: start: 20210318

REACTIONS (1)
  - Transient ischaemic attack [Recovering/Resolving]

NARRATIVE: CASE EVENT DATE: 20210414
